FAERS Safety Report 19739175 (Version 1)
Quarter: 2021Q3

REPORT INFORMATION
  Report Type: Spontaneous
  Country: HR (occurrence: HR)
  Receive Date: 20210824
  Receipt Date: 20210824
  Transmission Date: 20211014
  Serious: Yes (Other)
  Sender: FDA-Public Use
  Company Number: HR-PFIZER INC-202101079055

PATIENT
  Age: 66 Year
  Sex: Female
  Weight: 55 kg

DRUGS (1)
  1. ZESSLY [Suspect]
     Active Substance: INFLIXIMAB
     Indication: RHEUMATOID ARTHRITIS
     Dosage: 200 MG (ADR IS ADEQUATELY LABELLED: BURNING SKIN, BLOOD PRESSURE LABILE ADR IS NOT ADEQU)
     Route: 042
     Dates: start: 20201207

REACTIONS (4)
  - Skin burning sensation [Recovering/Resolving]
  - Swelling [Recovering/Resolving]
  - Labile blood pressure [Recovering/Resolving]
  - Choking [Recovering/Resolving]

NARRATIVE: CASE EVENT DATE: 20201207
